FAERS Safety Report 19053316 (Version 1)
Quarter: 2021Q1

REPORT INFORMATION
  Report Type: Spontaneous
  Country: US (occurrence: US)
  Receive Date: 20210324
  Receipt Date: 20210324
  Transmission Date: 20210420
  Serious: No
  Sender: FDA-Public Use
  Company Number: US-PFIZER INC-2021223652

PATIENT
  Age: 36 Year
  Sex: Female

DRUGS (4)
  1. PHENERGAN AND CHLORAL HYDRATE [Concomitant]
     Dosage: UNK
  2. AMOXICILLIN. [Concomitant]
     Active Substance: AMOXICILLIN
     Dosage: UNK
  3. DIFLUCAN [Concomitant]
     Active Substance: FLUCONAZOLE
     Dosage: UNK
     Route: 048
  4. XELJANZ [Suspect]
     Active Substance: TOFACITINIB CITRATE
     Indication: PSORIASIS
     Dosage: 5 MG, 2X/DAY
     Route: 048
     Dates: start: 202101

REACTIONS (5)
  - Swelling [Unknown]
  - Fungal infection [Unknown]
  - Nausea [Unknown]
  - Nasopharyngitis [Unknown]
  - Arthralgia [Unknown]
